FAERS Safety Report 19803750 (Version 1)
Quarter: 2021Q3

REPORT INFORMATION
  Report Type: Report from Study
  Country: CA (occurrence: CA)
  Receive Date: 20210908
  Receipt Date: 20210908
  Transmission Date: 20211014
  Serious: Yes (Other)
  Sender: FDA-Public Use
  Company Number: CA-ACCORD-237419

PATIENT
  Sex: Female

DRUGS (12)
  1. MYCOPHENOLIC ACID. [Suspect]
     Active Substance: MYCOPHENOLIC ACID
     Indication: DERMATOMYOSITIS
     Route: 048
  2. AZATHIOPRINE. [Concomitant]
     Active Substance: AZATHIOPRINE
  3. METHYLPREDNISOLONE. [Concomitant]
     Active Substance: METHYLPREDNISOLONE
     Route: 042
  4. PANTOPRAZOLE [Concomitant]
     Active Substance: PANTOPRAZOLE
  5. RITUXIMAB. [Suspect]
     Active Substance: RITUXIMAB
     Indication: DERMATOMYOSITIS
     Route: 041
  6. SULFATRIM [Concomitant]
     Active Substance: SULFAMETHOXAZOLE\TRIMETHOPRIM
  7. TYLENOL [Concomitant]
     Active Substance: ACETAMINOPHEN
  8. DESOXIMETASONE. [Concomitant]
     Active Substance: DESOXIMETASONE
  9. RISEDRONIC ACID [Concomitant]
     Active Substance: RISEDRONIC ACID
  10. CALCIUM GLUCONATE. [Concomitant]
     Active Substance: CALCIUM GLUCONATE
  11. HYDROXYCHLOROQUINE [Concomitant]
     Active Substance: HYDROXYCHLOROQUINE
  12. BENADRYL [Concomitant]
     Active Substance: DIPHENHYDRAMINE HYDROCHLORIDE
     Route: 048

REACTIONS (11)
  - Asthenia [Unknown]
  - Hyperkeratosis [Unknown]
  - Lung disorder [Unknown]
  - Muscle atrophy [Unknown]
  - Therapy non-responder [Unknown]
  - Myalgia [Unknown]
  - Skin disorder [Unknown]
  - Condition aggravated [Unknown]
  - Lung opacity [Unknown]
  - Off label use [Unknown]
  - Ulcer [Unknown]
